FAERS Safety Report 23954978 (Version 2)
Quarter: 2024Q3

REPORT INFORMATION
  Report Type: Spontaneous
  Country: US (occurrence: US)
  Receive Date: 20240610
  Receipt Date: 20240703
  Transmission Date: 20241017
  Serious: No
  Sender: APOTEX
  Company Number: US-APOTEX-2024AP006317

PATIENT

DRUGS (1)
  1. CALCITONIN SALMON [Suspect]
     Active Substance: CALCITONIN SALMON
     Indication: Product used for unknown indication
     Dosage: 2 DOSAGE FORM, QD (1 SPRAY IN ONE NOSTRIL DAILY)
     Route: 045
     Dates: start: 2024

REACTIONS (4)
  - Product dose omission issue [Unknown]
  - Product delivery mechanism issue [Unknown]
  - Incorrect dose administered by device [Unknown]
  - No adverse event [Unknown]

NARRATIVE: CASE EVENT DATE: 20240101
